FAERS Safety Report 4986046-3 (Version None)
Quarter: 2006Q2

REPORT INFORMATION
  Report Type: 
  Country: None (occurrence: None)
  Receive Date: 20060428
  Receipt Date: 20060419
  Transmission Date: 20061013
  Serious: Yes (Hospitalization)
  Sender: FDA-Public Use
  Company Number: 2006SE02202

PATIENT
  Age: 24921 Day
  Sex: Male
  Weight: 80 kg

DRUGS (8)
  1. CANDESARTAN CILEXETIL [Suspect]
     Indication: CARDIAC FAILURE
     Route: 048
     Dates: start: 20050921, end: 20051013
  2. CANDESARTAN CILEXETIL [Suspect]
     Route: 048
     Dates: start: 20051014, end: 20051027
  3. CANDESARTAN CILEXETIL [Suspect]
     Route: 048
     Dates: start: 20051028, end: 20051129
  4. CANDESARTAN CILEXETIL [Suspect]
     Route: 048
     Dates: start: 20051206, end: 20060219
  5. CANDESARTAN CILEXETIL [Suspect]
     Route: 048
     Dates: start: 20060220
  6. MARCUMAR [Concomitant]
     Indication: TRANSIENT ISCHAEMIC ATTACK
     Route: 048
     Dates: start: 20000403
  7. CONCOR [Concomitant]
     Indication: CARDIAC FAILURE
     Route: 048
     Dates: start: 20000403
  8. PRES PLUS [Concomitant]
     Indication: CARDIAC FAILURE
     Dosage: 10 MG ENALAPRIL MAELATE / 25 MG HYDROCHLOROTHIAZIDE
     Route: 048
     Dates: start: 20000403

REACTIONS (2)
  - HYPOTENSION [None]
  - SYNCOPE [None]
